FAERS Safety Report 14526267 (Version 3)
Quarter: 2018Q3

REPORT INFORMATION
  Report Type: Report from Study
  Country: SE (occurrence: SE)
  Receive Date: 20180213
  Receipt Date: 20180813
  Transmission Date: 20181010
  Serious: Yes (Other)
  Sender: FDA-Public Use
  Company Number: SE-ROCHE-1889867

PATIENT

DRUGS (5)
  1. RITUXIMAB. [Suspect]
     Active Substance: RITUXIMAB
     Indication: MANTLE CELL LYMPHOMA REFRACTORY
     Dosage: CYCLE 1 DAY 1
     Route: 042
  2. IBRUTINIB [Suspect]
     Active Substance: IBRUTINIB
     Dosage: DAY 1?56 (MAINTENANCE PHASE)
     Route: 048
  3. IBRUTINIB [Suspect]
     Active Substance: IBRUTINIB
     Indication: MANTLE CELL LYMPHOMA REFRACTORY
     Dosage: DAY (1?28) UPTO CYCLE 12 (INDUCTION PHASE)
     Route: 048
  4. RITUXIMAB. [Suspect]
     Active Substance: RITUXIMAB
     Indication: MANTLE CELL LYMPHOMA REFRACTORY
     Route: 058
  5. LENALIDOMIDE [Suspect]
     Active Substance: LENALIDOMIDE
     Indication: MANTLE CELL LYMPHOMA REFRACTORY
     Dosage: DAYS (1?21) UPTO CYCLE 12
     Route: 048

REACTIONS (8)
  - Thrombocytopenia [Unknown]
  - Infection [Unknown]
  - Neutropenia [Unknown]
  - Angiopathy [Unknown]
  - Tumour lysis syndrome [Unknown]
  - Rash [Unknown]
  - Gastrointestinal toxicity [Unknown]
  - Skin toxicity [Unknown]
